FAERS Safety Report 20702872 (Version 1)
Quarter: 2022Q2

REPORT INFORMATION
  Report Type: Spontaneous
  Country: NL (occurrence: NL)
  Receive Date: 20220412
  Receipt Date: 20220412
  Transmission Date: 20220721
  Serious: Yes (Death, Hospitalization, Other)
  Sender: FDA-Public Use
  Company Number: NL-STRIDES ARCOLAB LIMITED-2022SP003789

PATIENT
  Age: 4 Year
  Sex: Male

DRUGS (10)
  1. ETOPOSIDE [Suspect]
     Active Substance: ETOPOSIDE
     Indication: Neuroblastoma
     Dosage: UNK (DCOG-NBL 2009 HIGH RISK PROTOCOL)
     Route: 065
  2. CISPLATIN [Suspect]
     Active Substance: CISPLATIN
     Indication: Neuroblastoma
     Dosage: UNK (DCOG-NBL 2009 HIGH RISK PROTOCOL)
     Route: 065
  3. VINDESINE [Suspect]
     Active Substance: VINDESINE
     Indication: Neuroblastoma
     Dosage: UNK (DCOG-NBL 2009 HIGH RISK PROTOCOL)
     Route: 065
  4. VINCRISTINE [Suspect]
     Active Substance: VINCRISTINE
     Indication: Neuroblastoma
     Dosage: UNK (DCOG-NBL 2009 HIGH RISK PROTOCOL)
     Route: 065
  5. IFOSFAMIDE [Suspect]
     Active Substance: IFOSFAMIDE
     Indication: Neuroblastoma
     Dosage: UNK (DCOG-NBL 2009 HIGH RISK PROTOCOL)
     Route: 065
  6. DOXORUBICIN [Suspect]
     Active Substance: DOXORUBICIN
     Indication: Neuroblastoma
     Dosage: UNK (DCOG-NBL 2009 HIGH RISK PROTOCOL)
     Route: 065
  7. CYCLOPHOSPHAMIDE [Suspect]
     Active Substance: CYCLOPHOSPHAMIDE
     Indication: Neuroblastoma
     Dosage: UNK (DCOG-NBL 2009 HIGH RISK PROTOCOL)
     Route: 065
  8. TRETINOIN [Suspect]
     Active Substance: TRETINOIN
     Indication: Neuroblastoma
     Dosage: UNK (DCOG-NBL 2009 HIGH RISK PROTOCOL)
     Route: 065
  9. DACARBAZINE [Suspect]
     Active Substance: DACARBAZINE
     Indication: Neuroblastoma
     Dosage: UNK (DCOG-NBL 2009 HIGH RISK PROTOCOL)
     Route: 065
  10. ITRACONAZOLE [Concomitant]
     Active Substance: ITRACONAZOLE
     Indication: Antifungal prophylaxis
     Dosage: 5 MILLIGRAM/KILOGRAM, PER DAY
     Route: 048

REACTIONS (7)
  - Candida infection [Fatal]
  - Sepsis [Fatal]
  - Respiratory failure [Fatal]
  - Cardiac failure [Fatal]
  - Escherichia bacteraemia [Not Recovered/Not Resolved]
  - Pneumonia pneumococcal [Not Recovered/Not Resolved]
  - Off label use [Unknown]
